FAERS Safety Report 7468186-2 (Version None)
Quarter: 2011Q2

REPORT INFORMATION
  Report Type: 
  Country: None (occurrence: None)
  Receive Date: 20110509
  Receipt Date: 20110505
  Transmission Date: 20111010
  Serious: Yes (Other)
  Sender: FDA-Public Use
  Company Number: US-PFIZER INC-2011097082

PATIENT
  Sex: Female

DRUGS (2)
  1. CADUET [Suspect]
     Dosage: UNK
  2. NAPROXEN (ALEVE) [Suspect]
     Indication: ARTHRITIS
     Dosage: UNK

REACTIONS (1)
  - ARTHRITIS [None]
